FAERS Safety Report 13020439 (Version 1)
Quarter: 2016Q4

REPORT INFORMATION
  Report Type: Spontaneous
  Country: AU (occurrence: AU)
  Receive Date: 20161212
  Receipt Date: 20161212
  Transmission Date: 20170207
  Serious: Yes (Other)
  Sender: FDA-Public Use
  Company Number: AU-G+W LABS-GW2016AU000201

PATIENT

DRUGS (2)
  1. DEXAMETHASONE. [Suspect]
     Active Substance: DEXAMETHASONE
     Indication: VITRECTOMY
     Dosage: 2MG IN 0.5ML, SINGLE
     Route: 050
  2. GENTAMICIN SULFATE. [Suspect]
     Active Substance: GENTAMICIN SULFATE
     Indication: VITRECTOMY
     Dosage: 20 MG IN 0.5ML, SINGLE
     Route: 050

REACTIONS (1)
  - Maculopathy [Unknown]
